FAERS Safety Report 15377114 (Version 1)
Quarter: 2018Q3

REPORT INFORMATION
  Report Type: Spontaneous
  Country: AT (occurrence: AT)
  Receive Date: 20180913
  Receipt Date: 20180913
  Transmission Date: 20181010
  Serious: Yes (Hospitalization)
  Sender: FDA-Public Use
  Company Number: US-ASTRAZENECA-2018SF16566

PATIENT
  Age: 13 Month
  Sex: Female
  Weight: 6.9 kg

DRUGS (2)
  1. SYNAGIS [Suspect]
     Active Substance: PALIVIZUMAB
     Indication: ANTIVIRAL PROPHYLAXIS
     Dosage: ONCE 7?10 DAYS PRIOR TO INFECTION
     Route: 030
     Dates: start: 20170208
  2. SYNAGIS [Suspect]
     Active Substance: PALIVIZUMAB
     Indication: SPINAL MUSCULAR ATROPHY
     Dosage: ONCE 7?10 DAYS PRIOR TO INFECTION
     Route: 030
     Dates: start: 20170208

REACTIONS (8)
  - Tachypnoea [Unknown]
  - Mechanical ventilation [Recovered/Resolved]
  - Off label use [Unknown]
  - Gastrointestinal tube insertion [Unknown]
  - Upper respiratory tract infection [Unknown]
  - Tachycardia [Unknown]
  - Fatigue [Unknown]
  - Respiratory syncytial virus infection [Recovered/Resolved]

NARRATIVE: CASE EVENT DATE: 201702
